FAERS Safety Report 6791049-2 (Version None)
Quarter: 2010Q2

REPORT INFORMATION
  Report Type: 
  Country: None (occurrence: None)
  Receive Date: 20100623
  Receipt Date: 20100623
  Transmission Date: 20101027
  Serious: Yes (Hospitalization)
  Sender: FDA-Public Use
  Company Number: None

PATIENT
  Sex: Male
  Weight: 93.18 kg

DRUGS (7)
  1. TAXOL [Suspect]
     Dosage: 350 MG
     Dates: end: 20100602
  2. TOPOTECAN [Suspect]
     Dosage: 4.5 MG
     Dates: end: 20100604
  3. AMBIEN [Concomitant]
  4. COUMIDIN [Concomitant]
  5. MS CONTIN [Concomitant]
  6. PERCOCET [Concomitant]
  7. XANAX [Concomitant]

REACTIONS (7)
  - ASTHENIA [None]
  - BACTERIAL TEST POSITIVE [None]
  - CANDIDA TEST POSITIVE [None]
  - CHILLS [None]
  - DIARRHOEA [None]
  - HAEMOGLOBIN DECREASED [None]
  - HYDRONEPHROSIS [None]
